FAERS Safety Report 6752383-5 (Version None)
Quarter: 2010Q2

REPORT INFORMATION
  Report Type: 
  Country: None (occurrence: None)
  Receive Date: 20100601
  Receipt Date: 20100601
  Transmission Date: 20101027
  Serious: Yes (Hospitalization)
  Sender: FDA-Public Use
  Company Number: None

PATIENT
  Sex: Female
  Weight: 109 kg

DRUGS (19)
  1. SORAFENIB 200MG TABS 200MG TABS [Suspect]
     Indication: BREAST CANCER METASTATIC
     Dosage: SORAFENIB 200MG DAILY PO
     Route: 048
     Dates: start: 20100317, end: 20100518
  2. VINORELBINE [Suspect]
     Dosage: VINORELBINE 46MG WEEKLY X 3 IV BOLUS
     Route: 040
     Dates: start: 20100317, end: 20100518
  3. ACTOS [Concomitant]
  4. XANAX [Concomitant]
  5. ATIVAN [Concomitant]
  6. CYMBALTA [Concomitant]
  7. LASIX [Concomitant]
  8. GLUCOTROL [Concomitant]
  9. IMODIUM [Concomitant]
  10. INSULIN [Concomitant]
  11. LANTUS [Concomitant]
  12. MAALOX [Concomitant]
  13. OTC SLEEPING AID [Concomitant]
  14. PRILOSEC-OMEPRAZOLE- [Concomitant]
  15. PROTONIX [Concomitant]
  16. REPAGLINIDE -PRANDIN- [Concomitant]
  17. SORAFENIB -NEXAVAR- [IRB #08103 - INVESTIGATIONAL SUPPLY] [Concomitant]
  18. VICODIN [Concomitant]
  19. ZOFRAN [Concomitant]

REACTIONS (2)
  - ABDOMINAL PAIN UPPER [None]
  - DRUG INEFFECTIVE [None]
